FAERS Safety Report 9290502 (Version 4)
Quarter: 2013Q2

REPORT INFORMATION
  Report Type: Report from Study
  Country: PL (occurrence: PL)
  Receive Date: 20130515
  Receipt Date: 20130620
  Transmission Date: 20140414
  Serious: Yes (Death, Hospitalization, Disabling)
  Sender: FDA-Public Use
  Company Number: PL-ROCHE-1224220

PATIENT
  Age: 60 Year
  Sex: Male
  Weight: 89 kg

DRUGS (4)
  1. VEMURAFENIB [Suspect]
     Indication: MALIGNANT MELANOMA
     Dosage: DATE OF LAST DOSE PRIOR TO SAE 09/MAY/2013
     Route: 048
     Dates: start: 20130430, end: 20130509
  2. HYDROCHLOROTHIAZIDE/LOSARTAN POTASSIUM [Concomitant]
     Dosage: 25+100 MG
     Route: 065
  3. NEBIVOLOL [Concomitant]
     Route: 065
  4. RAMIPRIL [Concomitant]
     Route: 065

REACTIONS (1)
  - Cerebral haematoma [Fatal]
